FAERS Safety Report 15131441 (Version 1)
Quarter: 2018Q3

REPORT INFORMATION
  Report Type: Spontaneous
  Country: US (occurrence: US)
  Receive Date: 20180711
  Receipt Date: 20180711
  Transmission Date: 20181010
  Serious: No
  Sender: FDA-Public Use
  Company Number: US-HORIZON-PEN-0525-2018

PATIENT
  Age: 56 Year
  Sex: Female

DRUGS (1)
  1. PENNSAID [Suspect]
     Active Substance: DICLOFENAC SODIUM
     Indication: PAIN IN EXTREMITY
     Dosage: APPLY 2 PUMPS TO THE AFFECTED AREA
     Dates: start: 20180528, end: 20180609

REACTIONS (3)
  - Application site dryness [Unknown]
  - Off label use [Unknown]
  - Drug ineffective for unapproved indication [Unknown]
